FAERS Safety Report 21869914 (Version 1)
Quarter: 2023Q1

REPORT INFORMATION
  Report Type: Spontaneous
  Country: GB (occurrence: GB)
  Receive Date: 20230117
  Receipt Date: 20230117
  Transmission Date: 20230418
  Serious: No
  Sender: FDA-Public Use
  Company Number: GB-ALKEM LABORATORIES LIMITED-GB-ALKEM-2022-12782

PATIENT
  Age: 34 Year
  Sex: Female

DRUGS (4)
  1. ROMIPLOSTIM [Suspect]
     Active Substance: ROMIPLOSTIM
     Indication: Immune thrombocytopenia
     Dosage: 2 MICROGRAM/KILOGRAM
     Route: 065
  2. AZATHIOPRINE [Suspect]
     Active Substance: AZATHIOPRINE
     Indication: Immune thrombocytopenia
     Dosage: 50 MILLIGRAMS, QD (DAILY)
     Route: 065
  3. AZATHIOPRINE [Suspect]
     Active Substance: AZATHIOPRINE
     Dosage: 100 MILLIGRAM, QD (DAILY)
     Route: 065
  4. MYCOPHENOLATE MOFETIL [Concomitant]
     Active Substance: MYCOPHENOLATE MOFETIL
     Indication: Splenectomy
     Dosage: UNK
     Route: 065

REACTIONS (3)
  - Hypertransaminasaemia [Unknown]
  - Drug ineffective [Unknown]
  - Exposure during pregnancy [Unknown]
